FAERS Safety Report 13523895 (Version 3)
Quarter: 2020Q1

REPORT INFORMATION
  Report Type: Spontaneous
  Country: US (occurrence: US)
  Receive Date: 20170508
  Receipt Date: 20200324
  Transmission Date: 20200409
  Serious: No
  Sender: FDA-Public Use
  Company Number: US-VIFOR (INTERNATIONAL) INC.-VIT-2017-01999

PATIENT
  Age: 72 Year
  Sex: Female

DRUGS (11)
  1. LOSARTAN POT [Concomitant]
     Active Substance: LOSARTAN POTASSIUM
     Dates: start: 20161012
  2. INSULIN SYRG MIS [Concomitant]
     Dosage: 1 ML/ 28 G
     Dates: start: 20170110
  3. PREDNISONE. [Concomitant]
     Active Substance: PREDNISONE
     Dates: start: 20161012
  4. LEVOTHYROXIN [Concomitant]
     Active Substance: LEVOTHYROXINE
     Dates: start: 20161012
  5. VELTASSA [Suspect]
     Active Substance: PATIROMER
     Indication: HYPERKALAEMIA
     Route: 048
     Dates: start: 20161013
  6. ATORVASTATIN [Concomitant]
     Active Substance: ATORVASTATIN
     Dates: start: 20161012
  7. OMEPRAZOLE. [Concomitant]
     Active Substance: OMEPRAZOLE
     Dates: start: 20180519
  8. VELTASSA [Suspect]
     Active Substance: PATIROMER
     Route: 048
  9. CLONIDINE. [Concomitant]
     Active Substance: CLONIDINE
     Dates: start: 20161012
  10. SPIRONOLACTONE. [Concomitant]
     Active Substance: SPIRONOLACTONE
     Dates: start: 20161012
  11. METOPROLOL TAR [Concomitant]
     Active Substance: METOPROLOL TARTRATE
     Dates: start: 20161012

REACTIONS (2)
  - Off label use [Unknown]
  - Constipation [Not Recovered/Not Resolved]

NARRATIVE: CASE EVENT DATE: 20170201
